FAERS Safety Report 4928697-8 (Version None)
Quarter: 2006Q1

REPORT INFORMATION
  Report Type: 
  Country: None (occurrence: None)
  Receive Date: 20060301
  Receipt Date: 20060112
  Transmission Date: 20060701
  Serious: Yes (Hospitalization)
  Sender: FDA-Public Use
  Company Number: JP-ABBOTT-06P-087-0322295-00

PATIENT
  Age: 68 Year
  Sex: Female

DRUGS (8)
  1. LIPIDIL [Suspect]
     Indication: HYPERLIPIDAEMIA
     Route: 048
     Dates: start: 20051128, end: 20051213
  2. VOGLIBOSE [Concomitant]
     Indication: DRUG USE FOR UNKNOWN INDICATION
  3. ZOLPIDEM TARTRATE [Concomitant]
     Indication: DRUG USE FOR UNKNOWN INDICATION
  4. GLUFAST [Concomitant]
     Indication: DRUG USE FOR UNKNOWN INDICATION
  5. CEFCAPENE PIVOXIL HYDROCHLORIDE [Concomitant]
     Indication: DRUG USE FOR UNKNOWN INDICATION
  6. SERRAPEPTASE [Concomitant]
     Indication: DRUG USE FOR UNKNOWN INDICATION
  7. BEZAFIBRATE [Concomitant]
     Indication: DIABETES MELLITUS
     Dates: start: 19980307
  8. BEZAFIBRATE [Concomitant]
     Indication: HYPERLIPIDAEMIA

REACTIONS (7)
  - CHROMATURIA [None]
  - FACE OEDEMA [None]
  - HYPOGEUSIA [None]
  - LIVER DISORDER [None]
  - PHARYNGOLARYNGEAL PAIN [None]
  - RASH [None]
  - TOXIC SKIN ERUPTION [None]
